FAERS Safety Report 6544659-1 (Version None)
Quarter: 2010Q1

REPORT INFORMATION
  Report Type: 
  Country: None (occurrence: None)
  Receive Date: 20100121
  Receipt Date: 20100115
  Transmission Date: 20100710
  Serious: Yes (Death, Hospitalization)
  Sender: FDA-Public Use
  Company Number: DE-BAYER-200943843GPV

PATIENT
  Age: 74 Year
  Sex: Female
  Weight: 55 kg

DRUGS (16)
  1. CAMPATH [Suspect]
     Indication: CHRONIC LYMPHOCYTIC LEUKAEMIA
     Dosage: TREATMENT COURSES OF 28 DAYS
     Route: 058
     Dates: start: 20091005, end: 20091216
  2. PEGFILGRASTIM [Suspect]
     Indication: CHRONIC LYMPHOCYTIC LEUKAEMIA
     Dosage: DAYS 1 AND 15 EVERY 28 DAYS
     Route: 058
     Dates: start: 20091005, end: 20091216
  3. DEXAMETHASONE TAB [Suspect]
     Indication: CHRONIC LYMPHOCYTIC LEUKAEMIA
     Dosage: TREATMENT DAYS 1-4 AND 15-18 EVERY 28 DAYS
     Route: 048
     Dates: start: 20091005, end: 20091008
  4. DEXAMETHASONE TAB [Suspect]
     Route: 048
     Dates: start: 20091104, end: 20091107
  5. DEXAMETHASONE TAB [Suspect]
     Route: 048
     Dates: start: 20091022, end: 20091025
  6. DEXAMETHASONE TAB [Suspect]
     Route: 048
     Dates: start: 20091118, end: 20091121
  7. DEXAMETHASONE TAB [Suspect]
     Route: 048
     Dates: start: 20091216, end: 20091219
  8. PANTOPRAZOLE [Concomitant]
     Dosage: TOTAL DAILY DOSE: 40 MG
     Route: 048
  9. CALCIMAGON D3 [Concomitant]
     Dosage: TOTAL DAILY DOSE: 2 DF
     Route: 048
  10. ACIC [Concomitant]
     Dosage: TOTAL DAILY DOSE: 1600 MG
     Route: 048
  11. COTRIM [Concomitant]
     Dosage: 960 MG
     Route: 048
  12. AMIODARONE HYDROCHLORIDE [Concomitant]
     Dosage: TOTAL DAILY DOSE: 200 MG
     Route: 048
  13. ASS [Concomitant]
     Dosage: TOTAL DAILY DOSE: 100 MG
     Route: 048
  14. CLEXANE [Concomitant]
     Dosage: TOTAL DAILY DOSE: 1.2 ML
     Route: 058
     Dates: end: 20090301
  15. AUGMENTIN '125' [Concomitant]
     Dosage: TOTAL DAILY DOSE: 2000 MG
  16. TAVANIC [Concomitant]
     Dosage: TOTAL DAILY DOSE: 500 MG

REACTIONS (10)
  - ACUTE RESPIRATORY FAILURE [None]
  - C-REACTIVE PROTEIN INCREASED [None]
  - COUGH [None]
  - DIZZINESS [None]
  - NASOPHARYNGITIS [None]
  - OROPHARYNGEAL PAIN [None]
  - PNEUMONIA PRIMARY ATYPICAL [None]
  - RESPIRATORY ARREST [None]
  - SYNCOPE [None]
  - URINARY TRACT INFECTION [None]
